FAERS Safety Report 8101832-9 (Version None)
Quarter: 2012Q1

REPORT INFORMATION
  Report Type: 
  Country: None (occurrence: None)
  Receive Date: 20120131
  Receipt Date: 20120124
  Transmission Date: 20120608
  Serious: Yes (Hospitalization)
  Sender: FDA-Public Use
  Company Number: JP-B.I. PHARMACEUTICALS,INC./RIDGEFIELD-2011-BP-26011NB

PATIENT
  Sex: Male

DRUGS (7)
  1. MEPTIN [Concomitant]
     Indication: EMPHYSEMA
     Dosage: 10 MG
     Route: 048
  2. PL/NON-PYRINE COLD PREPARATION [Concomitant]
     Indication: NASOPHARYNGITIS
     Route: 048
  3. SPIRIVA [Suspect]
     Indication: CHRONIC OBSTRUCTIVE PULMONARY DISEASE
     Route: 055
     Dates: start: 20110601, end: 20111001
  4. UNIPHYL LA [Concomitant]
     Indication: EMPHYSEMA
     Dosage: 400 MG
     Route: 048
     Dates: start: 20080101
  5. MEDICON/DEXTROPMETHORPHAN HYDROBROMIDE HYDRATE [Concomitant]
     Indication: COUGH
     Route: 048
  6. GEMZAR [Concomitant]
  7. TROCHES(COMP.) [Concomitant]
     Indication: NASOPHARYNGITIS
     Route: 048

REACTIONS (2)
  - OROPHARYNGEAL PAIN [None]
  - LUNG NEOPLASM [None]
